FAERS Safety Report 5391298-4 (Version None)
Quarter: 2007Q3

REPORT INFORMATION
  Report Type: 
  Country: None (occurrence: None)
  Receive Date: 20070719
  Receipt Date: 20070713
  Transmission Date: 20080115
  Serious: Yes (Hospitalization)
  Sender: FDA-Public Use
  Company Number: A0651975A

PATIENT
  Age: 65 Year
  Sex: Female

DRUGS (2)
  1. TYKERB [Suspect]
     Indication: DRUG USE FOR UNKNOWN INDICATION
     Route: 065
     Dates: start: 20070427
  2. XELODA [Concomitant]
     Dates: start: 20070427

REACTIONS (6)
  - DIARRHOEA [None]
  - DRY EYE [None]
  - EPISTAXIS [None]
  - EYE PRURITUS [None]
  - FATIGUE [None]
  - MOUTH ULCERATION [None]
